FAERS Safety Report 14481029 (Version 1)
Quarter: 2018Q1

REPORT INFORMATION
  Report Type: Spontaneous
  Country: FR (occurrence: FR)
  Receive Date: 20180202
  Receipt Date: 20180202
  Transmission Date: 20180509
  Serious: Yes (Other)
  Sender: FDA-Public Use
  Company Number: FR-GLAXOSMITHKLINE-FR2018017570

PATIENT
  Sex: Female
  Weight: 82 kg

DRUGS (3)
  1. NICORETTE [Suspect]
     Active Substance: NICOTINE
     Indication: SMOKING CESSATION THERAPY
     Dosage: 2 DF, UNK
     Route: 048
     Dates: start: 20110201, end: 20180124
  2. CORTISONE (HYDROCORTISONE) [Concomitant]
     Indication: PRODUCT USED FOR UNKNOWN INDICATION
     Dosage: UNK
     Route: 065
     Dates: start: 2017
  3. RAMIPRIL. [Concomitant]
     Active Substance: RAMIPRIL
     Indication: HYPERTENSION
     Dosage: DOSAGE FORM: UNKNOWN, FOR THE PAST 5 MONTHS
     Route: 065

REACTIONS (3)
  - Overdose [Unknown]
  - Intentional product use issue [Unknown]
  - Nicotine dependence [Unknown]
